FAERS Safety Report 8315052-6 (Version None)
Quarter: 2012Q2

REPORT INFORMATION
  Report Type: 
  Country: None (occurrence: None)
  Receive Date: 20120426
  Receipt Date: 20120417
  Transmission Date: 20120825
  Serious: Yes (Other)
  Sender: FDA-Public Use
  Company Number: JP-JNJFOC-20120409293

PATIENT
  Sex: Male
  Weight: 50 kg

DRUGS (3)
  1. CLONAZEPAM [Concomitant]
     Route: 048
     Dates: start: 20110721
  2. FENTANYL-100 [Suspect]
     Indication: PAIN
     Route: 062
     Dates: start: 20111110, end: 20111215
  3. GABAPENTIN [Concomitant]
     Route: 048
     Dates: start: 20110721

REACTIONS (4)
  - CONSTIPATION [None]
  - VISUAL IMPAIRMENT [None]
  - FEELING ABNORMAL [None]
  - SOMNOLENCE [None]
